FAERS Safety Report 9333040 (Version 2)
Quarter: 2013Q3

REPORT INFORMATION
  Report Type: Spontaneous
  Country: JP (occurrence: JP)
  Receive Date: 20130606
  Receipt Date: 20130710
  Transmission Date: 20140515
  Serious: No
  Sender: FDA-Public Use
  Company Number: JP-VERTEX PHARMACEUTICALS INC-2013-006751

PATIENT
  Age: 71 Year
  Sex: Male

DRUGS (3)
  1. TELAVIC [Suspect]
     Indication: HEPATITIS C
     Dosage: 2250 MG, QD
     Route: 048
     Dates: start: 201201, end: 2012
  2. UNKNOWN DRUG [Suspect]
     Indication: HEPATITIS C
     Dosage: 100 ?G, UNK
     Route: 058
     Dates: start: 201201, end: 2012
  3. UNKNOWN DRUG [Suspect]
     Indication: HEPATITIS C
     Dosage: 800 MG, UNK
     Route: 048
     Dates: start: 201201, end: 2012

REACTIONS (1)
  - Rash [Recovered/Resolved]
